FAERS Safety Report 19846555 (Version 1)
Quarter: 2021Q3

REPORT INFORMATION
  Report Type: Spontaneous
  Country: US (occurrence: US)
  Receive Date: 20210916
  Receipt Date: 20210916
  Transmission Date: 20211014
  Serious: Yes (Hospitalization)
  Sender: FDA-Public Use
  Company Number: None

PATIENT
  Sex: Male

DRUGS (1)
  1. VELETRI [Suspect]
     Active Substance: EPOPROSTENOL
     Indication: PULMONARY ARTERIAL HYPERTENSION
     Dosage: ?          OTHER DOSE:9 NG/KG/MIN ;OTHER FREQUENCY:CONTINUOUS;?
     Route: 042
     Dates: start: 20210728

REACTIONS (3)
  - Nausea [None]
  - Headache [None]
  - Vomiting [None]
